FAERS Safety Report 5326804-9 (Version None)
Quarter: 2007Q2

REPORT INFORMATION
  Report Type: 
  Country: None (occurrence: None)
  Receive Date: 20070516
  Receipt Date: 20070507
  Transmission Date: 20071010
  Serious: Yes (Hospitalization)
  Sender: FDA-Public Use
  Company Number: AU-ABBOTT-07P-008-0364451-00

PATIENT
  Sex: Male

DRUGS (23)
  1. KALETRA [Suspect]
     Indication: DRUG USE FOR UNKNOWN INDICATION
     Route: 048
     Dates: start: 20070122, end: 20070301
  2. DIGOXIN [Concomitant]
     Indication: DRUG USE FOR UNKNOWN INDICATION
     Dates: end: 20070301
  3. CARVEDILOL [Concomitant]
     Indication: DRUG USE FOR UNKNOWN INDICATION
     Dates: end: 20070226
  4. CARVEDILOL [Concomitant]
     Route: 048
     Dates: start: 20070226, end: 20070401
  5. CARVEDILOL [Concomitant]
     Route: 048
     Dates: start: 20070401
  6. VALACYCLOVIR HCL [Concomitant]
     Indication: DRUG USE FOR UNKNOWN INDICATION
  7. CLOPIDOGREL BISULFATE [Concomitant]
     Indication: DRUG USE FOR UNKNOWN INDICATION
  8. OMEPRAZOLE [Concomitant]
     Indication: DRUG USE FOR UNKNOWN INDICATION
  9. VITAMIN CAP [Concomitant]
     Indication: DRUG USE FOR UNKNOWN INDICATION
  10. IMODIUM [Concomitant]
     Indication: DRUG USE FOR UNKNOWN INDICATION
  11. ZOLPIDEM [Concomitant]
     Indication: DRUG USE FOR UNKNOWN INDICATION
     Dates: end: 20070301
  12. FOSAMPRENAVIR [Concomitant]
     Indication: DRUG USE FOR UNKNOWN INDICATION
     Dates: start: 20030821, end: 20070121
  13. FOSAMPRENAVIR [Concomitant]
     Dates: start: 20070301
  14. RITONAVIR [Concomitant]
     Indication: DRUG USE FOR UNKNOWN INDICATION
     Dates: start: 20040408, end: 20070121
  15. RITONAVIR [Concomitant]
     Dates: start: 20070301
  16. ATAZANAVIR SULFATE [Concomitant]
     Indication: DRUG USE FOR UNKNOWN INDICATION
     Dates: start: 19910401, end: 19920601
  17. ATAZANAVIR SULFATE [Concomitant]
     Dates: start: 20040408
  18. ATAZANAVIR SULFATE [Concomitant]
     Dates: start: 20070301
  19. HYDROZOLE [Concomitant]
     Indication: DRUG USE FOR UNKNOWN INDICATION
     Dosage: 1 APPLICATION
     Route: 062
     Dates: start: 20070202, end: 20070204
  20. CEPHALEXIN [Concomitant]
     Indication: DRUG USE FOR UNKNOWN INDICATION
     Route: 048
     Dates: start: 20070403, end: 20070417
  21. STAVUDINE [Concomitant]
     Indication: DRUG USE FOR UNKNOWN INDICATION
     Dates: start: 19940101, end: 19950101
  22. STAVUDINE [Concomitant]
     Dates: start: 19980511, end: 19990801
  23. DIDANOSINE [Concomitant]
     Indication: DRUG USE FOR UNKNOWN INDICATION
     Dates: start: 19920601, end: 19930201

REACTIONS (1)
  - ATRIOVENTRICULAR BLOCK COMPLETE [None]
